FAERS Safety Report 9136609 (Version 1)
Quarter: 2013Q1

REPORT INFORMATION
  Report Type: Spontaneous
  Country: US (occurrence: US)
  Receive Date: 20130304
  Receipt Date: 20130304
  Transmission Date: 20140127
  Serious: No
  Sender: FDA-Public Use
  Company Number: US-ABBOTT-12P-163-0931341-00

PATIENT
  Age: 53 None
  Sex: Male
  Weight: 175.24 kg

DRUGS (16)
  1. ANDROGEL 1% [Suspect]
     Indication: BLOOD TESTOSTERONE DECREASED
     Route: 061
     Dates: start: 201107, end: 201109
  2. ANDROGEL 1% [Suspect]
     Route: 061
     Dates: start: 201109, end: 20120328
  3. ANDROGEL 1.62% [Suspect]
     Indication: BLOOD TESTOSTERONE DECREASED
     Dosage: 2 PUMPS DAILY
     Route: 061
     Dates: start: 20120328
  4. ALLOPURINOL [Concomitant]
     Indication: BLOOD URIC ACID
  5. LOPED [Concomitant]
     Indication: DIABETES MELLITUS
  6. GLYBURIDE [Concomitant]
     Indication: DIABETES MELLITUS
  7. ACTOS [Concomitant]
     Indication: DIABETES MELLITUS
  8. LANTUS [Concomitant]
     Indication: DIABETES MELLITUS
     Route: 050
  9. LOVAZA [Concomitant]
     Indication: PRODUCT USED FOR UNKNOWN INDICATION
     Route: 048
  10. WELCHOL [Concomitant]
     Indication: BLOOD CHOLESTEROL INCREASED
     Route: 048
  11. CIALIS [Concomitant]
     Indication: PRODUCT USED FOR UNKNOWN INDICATION
     Dosage: 5 MG 1 IN 1 D AS NEEDED
     Route: 048
  12. NIASPAN [Concomitant]
     Indication: BLOOD CHOLESTEROL INCREASED
     Route: 048
  13. QUINAPRIL [Concomitant]
     Indication: PRODUCT USED FOR UNKNOWN INDICATION
     Route: 048
  14. FUROSEMIDE [Concomitant]
     Indication: PRODUCT USED FOR UNKNOWN INDICATION
     Route: 048
  15. CARVEDILOL [Concomitant]
     Indication: PRODUCT USED FOR UNKNOWN INDICATION
     Route: 048
  16. ASPIRIN [Concomitant]
     Indication: PRODUCT USED FOR UNKNOWN INDICATION
     Route: 048

REACTIONS (4)
  - Erectile dysfunction [Recovered/Resolved]
  - Therapeutic response unexpected [Not Recovered/Not Resolved]
  - Erection increased [Not Recovered/Not Resolved]
  - Hypohidrosis [Not Recovered/Not Resolved]
